FAERS Safety Report 14575714 (Version 5)
Quarter: 2020Q2

REPORT INFORMATION
  Report Type: Report from Study
  Country: BR (occurrence: BR)
  Receive Date: 20180227
  Receipt Date: 20200601
  Transmission Date: 20200713
  Serious: Yes (Hospitalization)
  Sender: FDA-Public Use
  Company Number: BR-ROCHE-2078072

PATIENT
  Age: 57 Year
  Sex: Female
  Weight: 51 kg

DRUGS (26)
  1. NAB-PACLITAXEL [Suspect]
     Active Substance: PACLITAXEL
     Indication: TRIPLE NEGATIVE BREAST CANCER
     Dosage: FOR 12 WEEKS (AS PER PROTOCOL).?DATE OF MOST RECENT DOSE OF IV NAB-PACLITAXEL (185 MG, EVERY WEEK) P
     Route: 042
     Dates: start: 20180207
  2. PARACETAMOL/CODEINE [Concomitant]
     Active Substance: ACETAMINOPHEN\CODEINE PHOSPHATE
     Indication: PAIN
     Route: 065
     Dates: start: 20180223, end: 20180312
  3. NYSTATIN. [Concomitant]
     Active Substance: NYSTATIN
     Indication: MUCOSAL INFLAMMATION
     Route: 065
     Dates: start: 20180225, end: 20180312
  4. ENOXAPARINA [Concomitant]
     Active Substance: ENOXAPARIN
     Indication: THROMBOSIS
     Route: 065
     Dates: start: 20180227, end: 20180305
  5. GLYCERIN [GLYCEROL] [Concomitant]
     Indication: CONSTIPATION
     Route: 054
     Dates: start: 20180302, end: 20180306
  6. DIPIRONE [Concomitant]
     Active Substance: METAMIZOLE SODIUM
     Indication: PAIN
     Route: 065
     Dates: start: 20180220, end: 20180220
  7. METOCLOPRAMIDE. [Concomitant]
     Active Substance: METOCLOPRAMIDE
     Indication: VOMITING
  8. FUROSEMIDE. [Concomitant]
     Active Substance: FUROSEMIDE
     Indication: OEDEMA
     Route: 065
     Dates: start: 20180302, end: 20180304
  9. ENOXAPARINA [Concomitant]
     Active Substance: ENOXAPARIN
     Route: 065
     Dates: start: 20180306, end: 20180313
  10. CAPTOPRIL. [Concomitant]
     Active Substance: CAPTOPRIL
     Indication: HYPERTENSION
     Route: 065
     Dates: start: 20180302, end: 20180302
  11. METOCLOPRAMIDE. [Concomitant]
     Active Substance: METOCLOPRAMIDE
     Indication: NAUSEA
     Route: 065
     Dates: start: 20180220, end: 20180224
  12. SALBUTAMOL [Concomitant]
     Active Substance: ALBUTEROL
     Route: 065
     Dates: start: 20180302, end: 20180302
  13. ALBENDAZOLE. [Concomitant]
     Active Substance: ALBENDAZOLE
     Route: 065
     Dates: start: 20180312, end: 20180312
  14. DIPIRONE [Concomitant]
     Active Substance: METAMIZOLE SODIUM
     Indication: PYREXIA
  15. NYSTATIN. [Concomitant]
     Active Substance: NYSTATIN
     Route: 067
     Dates: start: 20180302, end: 20180312
  16. FILGRASTIM [Concomitant]
     Active Substance: FILGRASTIM
     Indication: NEUTROPENIA
     Route: 065
     Dates: start: 20180222, end: 20180224
  17. MINERAL OIL. [Concomitant]
     Active Substance: MINERAL OIL
     Indication: CONSTIPATION
     Route: 065
     Dates: start: 20180220, end: 20180222
  18. POTASSIUM CHLORIDE. [Concomitant]
     Active Substance: POTASSIUM CHLORIDE
     Route: 065
     Dates: start: 20180226, end: 20180226
  19. PARACETAMOL [Concomitant]
     Active Substance: ACETAMINOPHEN
     Indication: PAIN
     Route: 065
     Dates: start: 20180220, end: 20180220
  20. OMEPRAZOLE. [Concomitant]
     Active Substance: OMEPRAZOLE
     Indication: GASTRITIS
     Route: 065
     Dates: start: 20180220, end: 20180313
  21. IVERMECTIN. [Concomitant]
     Active Substance: IVERMECTIN
     Route: 065
     Dates: start: 20180312, end: 20180312
  22. MORPHINE [Concomitant]
     Active Substance: MORPHINE
     Indication: PAIN
     Route: 065
     Dates: start: 20180223, end: 20180302
  23. FENOTEROL [Concomitant]
     Active Substance: FENOTEROL
     Route: 065
     Dates: start: 20180224, end: 20180406
  24. MAGNESIUM SULFATE. [Concomitant]
     Active Substance: MAGNESIUM SULFATE
     Indication: GASTRITIS
     Route: 065
     Dates: start: 20180305, end: 20180309
  25. ATEZOLIZUMAB. [Suspect]
     Active Substance: ATEZOLIZUMAB
     Indication: TRIPLE NEGATIVE BREAST CANCER
     Dosage: DATE OF MOST RECENT DOSE OF IV ATEZOLIZUMAB (EVERY 2 WEEKS) PRIOR TO SAE ONSET WAS 07/FEB/2018 AT 17
     Route: 042
     Dates: start: 20180207
  26. FUROSEMIDE. [Concomitant]
     Active Substance: FUROSEMIDE
     Route: 065
     Dates: start: 20180302, end: 20180303

REACTIONS (1)
  - Pneumonia [Recovered/Resolved]

NARRATIVE: CASE EVENT DATE: 20180218
